FAERS Safety Report 11887462 (Version 2)
Quarter: 2016Q1

REPORT INFORMATION
  Report Type: Report from Study
  Country: US (occurrence: US)
  Receive Date: 20160105
  Receipt Date: 20160113
  Transmission Date: 20160526
  Serious: Yes (Hospitalization)
  Sender: FDA-Public Use
  Company Number: US-ASTRAZENECA-2015SF31377

PATIENT
  Age: 26121 Day
  Sex: Female

DRUGS (19)
  1. ADVAIR HFA [Concomitant]
     Active Substance: FLUTICASONE PROPIONATE\SALMETEROL XINAFOATE
     Route: 055
     Dates: start: 2007
  2. CLINDAMYCIN [Concomitant]
     Active Substance: CLINDAMYCIN\CLINDAMYCIN PHOSPHATE
     Indication: SUPPLEMENTATION THERAPY
     Route: 048
     Dates: start: 201312
  3. PROSYNBIOTIC [Concomitant]
     Indication: SUPPLEMENTATION THERAPY
     Dosage: 280 MG QD, QAM, QHS
     Route: 048
     Dates: start: 201307
  4. ACLIDINIUM BROMIDE [Suspect]
     Active Substance: ACLIDINIUM BROMIDE
     Indication: CHRONIC OBSTRUCTIVE PULMONARY DISEASE
     Dosage: RUN IN PERIOD
     Route: 055
     Dates: start: 20140822, end: 20141211
  5. ACLIDINIUM BROMIDE [Suspect]
     Active Substance: ACLIDINIUM BROMIDE
     Indication: CHRONIC OBSTRUCTIVE PULMONARY DISEASE
     Route: 055
     Dates: start: 20150821, end: 20151219
  6. LEVOTHYROXINE. [Concomitant]
     Active Substance: LEVOTHYROXINE
     Indication: HYPOTHYROIDISM
     Dosage: 10 UG QD, QAM, QHS
     Route: 048
     Dates: start: 1996
  7. ACLIDINIUM BROMIDE [Suspect]
     Active Substance: ACLIDINIUM BROMIDE
     Indication: CHRONIC OBSTRUCTIVE PULMONARY DISEASE
     Dosage: RUN IN PERIOD
     Route: 055
     Dates: start: 20141212, end: 20150308
  8. LORATADINE. [Concomitant]
     Active Substance: LORATADINE
     Indication: RHINITIS ALLERGIC
     Dosage: 10 MG QD, QAM, QHS
     Route: 048
     Dates: start: 2000
  9. PRO OMEGA (CONTAINS OMEGA 3S) [Concomitant]
     Indication: SUPPLEMENTATION THERAPY
     Dosage: 1280 MG QD, QAM, QHS
     Route: 048
     Dates: start: 201303
  10. CALCIUM [Concomitant]
     Active Substance: CALCIUM
     Indication: SUPPLEMENTATION THERAPY
     Route: 048
     Dates: start: 201303
  11. VITAMIN D WITH VITAMIN A [Concomitant]
     Indication: SUPPLEMENTATION THERAPY
     Dosage: 800/500 IU QD,QAM,QHS
     Route: 048
     Dates: start: 201403
  12. ZYPAN [Concomitant]
     Indication: SUPPLEMENTATION THERAPY
     Dosage: 1 OTHER BID
     Route: 048
     Dates: start: 20140805
  13. IBUPROFEN. [Concomitant]
     Active Substance: IBUPROFEN
     Indication: DENTAL DISORDER PROPHYLAXIS
     Route: 048
     Dates: start: 2013
  14. ACLIDINIUM BROMIDE [Suspect]
     Active Substance: ACLIDINIUM BROMIDE
     Indication: CHRONIC OBSTRUCTIVE PULMONARY DISEASE
     Route: 055
     Dates: start: 20150529, end: 20150820
  15. TRIMETHOPRIM/SULFAMETHOXAZOLE [Concomitant]
     Active Substance: SULFAMETHOXAZOLE\TRIMETHOPRIM
     Indication: URINARY TRACT INFECTION BACTERIAL
     Dosage: 160/800 MG PRN
     Route: 048
     Dates: start: 2007
  16. ENZYMES NOS [Concomitant]
     Indication: SUPPLEMENTATION THERAPY
     Dosage: 1 OTHER QD,QAM,QHS
     Route: 048
     Dates: start: 20140603
  17. ACLIDINIUM BROMIDE [Suspect]
     Active Substance: ACLIDINIUM BROMIDE
     Indication: CHRONIC OBSTRUCTIVE PULMONARY DISEASE
     Route: 055
     Dates: start: 20150309, end: 20150528
  18. LATANOPROST. [Concomitant]
     Active Substance: LATANOPROST
     Indication: OPEN ANGLE GLAUCOMA
     Dosage: 1 OTEHR QD, QAM, QHS
     Dates: start: 20121025
  19. IBUPROFEN. [Concomitant]
     Active Substance: IBUPROFEN
     Indication: ARTHRALGIA
     Route: 048
     Dates: start: 2013

REACTIONS (1)
  - Cerebrovascular accident [Recovering/Resolving]

NARRATIVE: CASE EVENT DATE: 20151216
